FAERS Safety Report 5020314-4 (Version None)
Quarter: 2006Q2

REPORT INFORMATION
  Report Type: 
  Country: None (occurrence: None)
  Receive Date: 20060601
  Receipt Date: 20060517
  Transmission Date: 20061013
  Serious: Yes (Hospitalization)
  Sender: FDA-Public Use
  Company Number: 02100-JPN-06-0181

PATIENT
  Age: 62 Year
  Sex: Male

DRUGS (4)
  1. CILOSTAZOL [Suspect]
     Indication: CEREBROVASCULAR ACCIDENT PROPHYLAXIS
     Dosage: 200 MG ORAL
     Route: 048
     Dates: start: 20060311, end: 20060403
  2. ASPIRIN [Concomitant]
  3. FAMOTIDINE [Concomitant]
  4. MAGNESIUM OXIDE [Concomitant]

REACTIONS (4)
  - ANAEMIA [None]
  - ERYTHEMA MULTIFORME [None]
  - LOSS OF CONSCIOUSNESS [None]
  - PLATELET COUNT DECREASED [None]
